FAERS Safety Report 24784621 (Version 1)
Quarter: 2024Q4

REPORT INFORMATION
  Report Type: Spontaneous
  Country: US (occurrence: None)
  Receive Date: 20241227
  Receipt Date: 20241227
  Transmission Date: 20250115
  Serious: Yes (Other)
  Sender: Public
  Company Number: None

PATIENT
  Age: 64 Year
  Sex: Female

DRUGS (1)
  1. XDEMVY [Suspect]
     Active Substance: LOTILANER
     Indication: Demodex blepharitis
     Dosage: 1 DROP  ML BID OPHTHLMIC
     Route: 047
     Dates: start: 20241101, end: 20241206

REACTIONS (3)
  - Eyelid irritation [None]
  - Swelling [None]
  - Pain [None]

NARRATIVE: CASE EVENT DATE: 20241206
